FAERS Safety Report 4384967-6 (Version None)
Quarter: 2004Q2

REPORT INFORMATION
  Report Type: 
  Country: None (occurrence: None)
  Receive Date: 20040623
  Receipt Date: 20040623
  Transmission Date: 20050107
  Serious: Yes (Other)
  Sender: FDA-Public Use
  Company Number: None

PATIENT
  Age: 59 Year
  Sex: Male

DRUGS (3)
  1. TAXOL [Suspect]
     Indication: SQUAMOUS CELL CARCINOMA
     Dosage: 40MG/M2 = 80MG Q WK X 8 IV
     Route: 042
     Dates: start: 20040607
  2. TAXOL [Suspect]
     Indication: SQUAMOUS CELL CARCINOMA
     Dosage: 40MG/M2 = 80MG Q WK X 8 IV
     Route: 042
     Dates: start: 20040614
  3. TAXOL [Suspect]
     Indication: SQUAMOUS CELL CARCINOMA
     Dosage: 40MG/M2 = 80MG Q WK X 8 IV
     Route: 042
     Dates: start: 20040621

REACTIONS (6)
  - COUGH [None]
  - DYSPNOEA [None]
  - FLUSHING [None]
  - HYPERHIDROSIS [None]
  - PRURITUS [None]
  - URTICARIA [None]
